FAERS Safety Report 4324900-6 (Version None)
Quarter: 2004Q1

REPORT INFORMATION
  Report Type: 
  Country: None (occurrence: None)
  Receive Date: 20040326
  Receipt Date: 20040303
  Transmission Date: 20041129
  Serious: Yes (Death, Hospitalization, Other)
  Sender: FDA-Public Use
  Company Number: PHNU2004DE01125

PATIENT
  Age: 79 Year
  Sex: Female
  Weight: 59 kg

DRUGS (7)
  1. GLEEVEC [Suspect]
     Indication: CHRONIC MYELOID LEUKAEMIA
     Dosage: 200MG/DAY
     Route: 048
     Dates: start: 20030718, end: 20040301
  2. FUROSEMIDE [Concomitant]
     Indication: CARDIAC FAILURE
     Dosage: 40MG/DAY
     Route: 048
     Dates: end: 20040301
  3. BISOPROLOL [Concomitant]
     Indication: CARDIAC FAILURE
     Dosage: 2.5MG/DAY
     Route: 048
     Dates: end: 20040301
  4. CARBAMAZEPINE [Concomitant]
     Indication: TRIGEMINAL NEURALGIA
     Dosage: 800MG/DAY
     Route: 048
     Dates: start: 20031001, end: 20040301
  5. DURAGESIC [Concomitant]
     Indication: TRIGEMINAL NEURALGIA
     Route: 062
     Dates: end: 20040301
  6. NOVALGIN                                /SWE/ [Concomitant]
     Indication: TRIGEMINAL NEURALGIA
     Dosage: 120DRPS/DAY
     Route: 048
     Dates: end: 20040301
  7. FENISTIL [Concomitant]
     Indication: PRURITUS
     Dosage: 80DRPS/DAY
     Route: 048
     Dates: end: 20040301

REACTIONS (14)
  - ACTIVATED PARTIAL THROMBOPLASTIN TIME PROLONGED [None]
  - ANAEMIA OF MALIGNANT DISEASE [None]
  - ANAL HAEMORRHAGE [None]
  - CONDITION AGGRAVATED [None]
  - DEHYDRATION [None]
  - HAEMOGLOBIN DECREASED [None]
  - ILEUS [None]
  - INTERNATIONAL NORMALISED RATIO INCREASED [None]
  - MALIGNANT NEOPLASM PROGRESSION [None]
  - MULTI-ORGAN FAILURE [None]
  - PACKED RED BLOOD CELL TRANSFUSION [None]
  - PROTHROMBIN TIME PROLONGED [None]
  - SUBILEUS [None]
  - VOMITING [None]
